FAERS Safety Report 7395049-3 (Version None)
Quarter: 2011Q2

REPORT INFORMATION
  Report Type: 
  Country: None (occurrence: None)
  Receive Date: 20110405
  Receipt Date: 20110330
  Transmission Date: 20111010
  Serious: Yes (Other)
  Sender: FDA-Public Use
  Company Number: FR-MERCK-1011FRA00100

PATIENT
  Age: 42 Year
  Sex: Male

DRUGS (6)
  1. EMTRICITABINE AND TENOFOVIR DISOPROXIL FUMARATE [Concomitant]
     Indication: HIV INFECTION
     Route: 048
     Dates: start: 20070601
  2. SULFAMETHOXAZOLE AND TRIMETHOPRIM [Suspect]
     Indication: PROPHYLAXIS
     Route: 048
     Dates: start: 20100614
  3. ISENTRESS [Suspect]
     Indication: HIV INFECTION
     Route: 048
     Dates: start: 20100913, end: 20101116
  4. ITRACONAZOLE [Concomitant]
     Indication: HISTOPLASMOSIS
     Route: 048
     Dates: start: 20101001
  5. LEVETIRACETAM [Concomitant]
     Indication: EPILEPSY
     Route: 048
     Dates: start: 20100701
  6. TRIMEPRAZINE TARTRATE [Concomitant]
     Route: 048

REACTIONS (1)
  - INSULIN-REQUIRING TYPE 2 DIABETES MELLITUS [None]
